FAERS Safety Report 4881016-8 (Version None)
Quarter: 2005Q4

REPORT INFORMATION
  Report Type: 
  Country: None (occurrence: None)
  Receive Date: 20051223
  Receipt Date: 20050926
  Transmission Date: 20060501
  Serious: No
  Sender: FDA-Public Use
  Company Number: 05P-163-0311875-00

PATIENT
  Sex: Female
  Weight: 81.1939 kg

DRUGS (6)
  1. HUMIRA [Suspect]
     Indication: RHEUMATOID ARTHRITIS
     Dosage: 40 MG, 1 IN 2 WK, SUBCUTANEOUS
     Route: 058
     Dates: start: 20050601, end: 20050801
  2. HUMIRA [Suspect]
     Indication: RHEUMATOID ARTHRITIS
     Dosage: 40 MG, 1 IN 2 WK, SUBCUTANEOUS
     Route: 058
     Dates: start: 20050926
  3. METHOTREXATE SODIUM [Concomitant]
  4. PREDNISONE [Concomitant]
  5. CYCLOBENZAPRINE HCL [Concomitant]
  6. OXYCOCET [Concomitant]

REACTIONS (1)
  - BRONCHITIS [None]
